FAERS Safety Report 13764215 (Version 2)
Quarter: 2018Q1

REPORT INFORMATION
  Report Type: Spontaneous
  Country: SE (occurrence: SE)
  Receive Date: 20170718
  Receipt Date: 20180314
  Transmission Date: 20180508
  Serious: Yes (Death)
  Sender: FDA-Public Use
  Company Number: SE-TEVA-785275ISR

PATIENT
  Age: 67 Year
  Sex: Male

DRUGS (1)
  1. MIRTAZAPINE ACTAVIS [Suspect]
     Active Substance: MIRTAZAPINE
     Route: 065
     Dates: end: 20160701

REACTIONS (3)
  - Completed suicide [Fatal]
  - Hyperhidrosis [Fatal]
  - Tardive dyskinesia [Fatal]

NARRATIVE: CASE EVENT DATE: 201511
